FAERS Safety Report 5342002-7 (Version None)
Quarter: 2007Q2

REPORT INFORMATION
  Report Type: 
  Country: None (occurrence: None)
  Receive Date: 20070601
  Receipt Date: 20070522
  Transmission Date: 20071010
  Serious: Yes (Hospitalization)
  Sender: FDA-Public Use
  Company Number: US-AVENTIS-200712507EU

PATIENT
  Age: 71 Year
  Sex: Male

DRUGS (3)
  1. LASIX [Suspect]
  2. WARFARIN SODIUM [Suspect]
     Dates: start: 20070330
  3. SPIRONOLACTONE [Concomitant]

REACTIONS (4)
  - CONDITION AGGRAVATED [None]
  - DYSPNOEA [None]
  - HYPERKALAEMIA [None]
  - RENAL FAILURE ACUTE [None]
